FAERS Safety Report 18074398 (Version 1)
Quarter: 2020Q3

REPORT INFORMATION
  Report Type: Spontaneous
  Country: DE (occurrence: DE)
  Receive Date: 20200727
  Receipt Date: 20200727
  Transmission Date: 20201103
  Serious: Yes (Other)
  Sender: FDA-Public Use
  Company Number: DE-009507513-2007DEU008913

PATIENT
  Sex: Female

DRUGS (1)
  1. PEMBROLIZUMAB. [Suspect]
     Active Substance: PEMBROLIZUMAB
     Indication: LUNG ADENOCARCINOMA
     Dosage: UNK
     Dates: start: 201904, end: 202003

REACTIONS (4)
  - Adenocarcinoma [Unknown]
  - Cushing^s syndrome [Unknown]
  - Pemphigoid [Unknown]
  - Skin reaction [Unknown]

NARRATIVE: CASE EVENT DATE: 2019
